FAERS Safety Report 4928085-4 (Version None)
Quarter: 2006Q1

REPORT INFORMATION
  Report Type: 
  Country: None (occurrence: None)
  Receive Date: 20060127
  Receipt Date: 20051209
  Transmission Date: 20060701
  Serious: Yes (Other)
  Sender: FDA-Public Use
  Company Number: 2005166898

PATIENT
  Age: 77 Year
  Sex: Female

DRUGS (1)
  1. LYRICA [Suspect]
     Dosage: 150 MG (150 MG, ONCE)
     Dates: start: 20051122, end: 20051122

REACTIONS (4)
  - DYSKINESIA [None]
  - NAUSEA [None]
  - SOMNOLENCE [None]
  - VOMITING [None]
